FAERS Safety Report 7086088-0 (Version None)
Quarter: 2010Q4

REPORT INFORMATION
  Report Type: 
  Country: None (occurrence: None)
  Receive Date: 20101105
  Receipt Date: 20101027
  Transmission Date: 20110411
  Serious: Yes (Congenital Anomaly, Other)
  Sender: FDA-Public Use
  Company Number: A0890813A

PATIENT
  Sex: Male
  Weight: 3.8 kg

DRUGS (3)
  1. TRIZIVIR [Suspect]
     Indication: HIV INFECTION
     Dosage: 2TAB PER DAY
  2. RETROVIR [Suspect]
     Indication: HIV INFECTION
     Dosage: 2MGKH PER DAY
     Route: 042
     Dates: start: 20091120, end: 20091120
  3. RETROVIR [Suspect]
     Dosage: 1MGKH PER DAY
     Route: 042
     Dates: start: 20091120, end: 20091120

REACTIONS (4)
  - DEAFNESS CONGENITAL [None]
  - DRUG EXPOSURE DURING PREGNANCY [None]
  - MATERNAL DRUGS AFFECTING FOETUS [None]
  - SOTOS' SYNDROME [None]
